FAERS Safety Report 22525067 (Version 1)
Quarter: 2023Q2

REPORT INFORMATION
  Report Type: Spontaneous
  Country: US (occurrence: US)
  Receive Date: 20230606
  Receipt Date: 20230606
  Transmission Date: 20230721
  Serious: Yes (Other)
  Sender: FDA-Public Use
  Company Number: US-drreddys-LIT/USA/23/0166158

PATIENT
  Age: 5 Month
  Sex: Male

DRUGS (8)
  1. SIROLIMUS [Suspect]
     Active Substance: SIROLIMUS
     Indication: Congenital fibrosarcoma
  2. DOXORUBICIN HYDROCHLORIDE [Suspect]
     Active Substance: DOXORUBICIN HYDROCHLORIDE
     Indication: Congenital fibrosarcoma
     Dosage: SIX ALTERNATING CYCLES
  3. VINCRISTINE [Suspect]
     Active Substance: VINCRISTINE
     Indication: Congenital fibrosarcoma
     Dosage: 6 ALTERNATING CYCLES
  4. DACTINOMYCIN [Suspect]
     Active Substance: DACTINOMYCIN
     Indication: Congenital fibrosarcoma
     Dosage: SIX ALTERNATING CYCLES
  5. CYCLOPHOSPHAMIDE [Suspect]
     Active Substance: CYCLOPHOSPHAMIDE
     Indication: Congenital fibrosarcoma
     Dosage: SIX ALTERNATING CYCLES
  6. ETOPOSIDE [Suspect]
     Active Substance: ETOPOSIDE
     Indication: Congenital fibrosarcoma
     Dosage: SIX ALTERNATING CYCLES
  7. IFOSFAMIDE [Suspect]
     Active Substance: IFOSFAMIDE
     Indication: Congenital fibrosarcoma
     Dosage: SIX ALTERNATING CYCLES
  8. PREDNISONE [Concomitant]
     Active Substance: PREDNISONE
     Indication: Congenital fibrosarcoma

REACTIONS (4)
  - Congenital fibrosarcoma [Recovering/Resolving]
  - Neoplasm progression [Recovering/Resolving]
  - Drug ineffective for unapproved indication [Unknown]
  - Product use issue [Unknown]
